FAERS Safety Report 5348020-7 (Version None)
Quarter: 2007Q2

REPORT INFORMATION
  Report Type: 
  Country: None (occurrence: None)
  Receive Date: 20070606
  Receipt Date: 20070523
  Transmission Date: 20071010
  Serious: Yes (Hospitalization)
  Sender: FDA-Public Use
  Company Number: CH-ASTRAZENECA-2007PK01067

PATIENT
  Age: 52 Year
  Sex: Female

DRUGS (17)
  1. METOPROLOL SUCCINATE [Suspect]
     Route: 048
     Dates: start: 20060913
  2. VALPROATE SODIUM [Interacting]
     Route: 048
     Dates: start: 20060913, end: 20060913
  3. VALPROATE SODIUM [Interacting]
     Route: 048
     Dates: start: 20060914, end: 20060915
  4. VALPROATE SODIUM [Interacting]
     Route: 048
     Dates: start: 20060916, end: 20060919
  5. VALPROATE SODIUM [Interacting]
     Route: 048
     Dates: start: 20060920, end: 20060924
  6. VALPROATE SODIUM [Interacting]
     Route: 048
     Dates: start: 20060925
  7. LORAZEPAM [Interacting]
     Route: 048
     Dates: start: 20060918, end: 20060918
  8. LORAZEPAM [Interacting]
     Route: 048
     Dates: start: 20060919, end: 20060926
  9. LORAZEPAM [Interacting]
     Route: 048
     Dates: start: 20060927, end: 20060927
  10. LORAZEPAM [Interacting]
     Route: 048
     Dates: start: 20060928, end: 20061002
  11. LORAZEPAM [Interacting]
     Route: 048
     Dates: start: 20061003
  12. ASPIRIN [Interacting]
     Route: 048
     Dates: start: 20060910
  13. RISPERDAL [Interacting]
     Route: 048
     Dates: start: 20020101
  14. AKINETON [Concomitant]
     Route: 048
     Dates: start: 20060913
  15. ZANTIC [Concomitant]
     Route: 048
     Dates: start: 20060913
  16. MAGNESIOCARD [Concomitant]
     Route: 048
     Dates: start: 20060913
  17. COVERSUM [Concomitant]
     Route: 048
     Dates: start: 20060913

REACTIONS (6)
  - DIZZINESS [None]
  - DRUG INTERACTION [None]
  - DRUG LEVEL INCREASED [None]
  - FALL [None]
  - FOOT FRACTURE [None]
  - GAIT DISTURBANCE [None]
